FAERS Safety Report 6372595-2 (Version None)
Quarter: 2009Q3

REPORT INFORMATION
  Report Type: 
  Country: None (occurrence: None)
  Receive Date: 20090924
  Receipt Date: 20081219
  Transmission Date: 20100115
  Serious: No
  Sender: FDA-Public Use
  Company Number: US-ASTRAZENECA-2008UW18327

PATIENT
  Age: 47 Year
  Sex: Male
  Weight: 90.7 kg

DRUGS (11)
  1. SEROQUEL [Suspect]
     Indication: SCHIZOPHRENIA
     Dosage: 100 MG, 200 MG
     Route: 048
     Dates: start: 20030801, end: 20040601
  2. SEROQUEL [Suspect]
     Indication: BIPOLAR DISORDER
     Dosage: 100 MG, 200 MG
     Route: 048
     Dates: start: 20030801, end: 20040601
  3. SEROQUEL [Suspect]
     Dosage: 100 MG, 200 MG
     Route: 048
     Dates: start: 20041217, end: 20060101
  4. SEROQUEL [Suspect]
     Dosage: 100 MG, 200 MG
     Route: 048
     Dates: start: 20041217, end: 20060101
  5. ABILIFY [Concomitant]
     Dates: start: 20030704
  6. GEODON [Concomitant]
     Dates: start: 20030101, end: 20030701
  7. HALDOL [Concomitant]
     Dates: start: 20080101
  8. RISPERDAL [Concomitant]
     Dates: start: 20080101
  9. ZYPREXA [Concomitant]
     Dates: start: 20030528
  10. ZYPREXA [Concomitant]
     Dates: start: 20030724
  11. DEPAKOTE [Concomitant]
     Dates: start: 20030501, end: 20050901

REACTIONS (5)
  - ARTHRITIS [None]
  - DIABETES MELLITUS [None]
  - PNEUMONIA [None]
  - RESPIRATORY DISORDER [None]
  - SKIN LACERATION [None]
